FAERS Safety Report 13829857 (Version 1)
Quarter: 2017Q3

REPORT INFORMATION
  Report Type: Spontaneous
  Country: FR (occurrence: FR)
  Receive Date: 20170803
  Receipt Date: 20170803
  Transmission Date: 20171127
  Serious: Yes (Other)
  Sender: FDA-Public Use
  Company Number: PHHY2017FR110028

PATIENT
  Age: 77 Year
  Sex: Male

DRUGS (2)
  1. AMOXICILLIN. [Suspect]
     Active Substance: AMOXICILLIN
     Indication: LISTERIOSIS
     Route: 065
  2. SULFAMETHOXAZOLE AND TRIMETHOPRIM [Suspect]
     Active Substance: SULFAMETHOXAZOLE\TRIMETHOPRIM
     Indication: LISTERIOSIS
     Route: 065

REACTIONS (15)
  - Hypersensitivity vasculitis [Recovered/Resolved]
  - Rash maculo-papular [Recovered/Resolved]
  - Chills [Recovering/Resolving]
  - Asthenia [Recovering/Resolving]
  - Blood alkaline phosphatase increased [Recovering/Resolving]
  - Pruritus [Recovered/Resolved]
  - Renal failure [Recovering/Resolving]
  - Eosinophilia [Recovered/Resolved]
  - Decreased appetite [Recovering/Resolving]
  - Diarrhoea [Recovering/Resolving]
  - T-cell lymphoma [Recovered/Resolved]
  - Erythema [Recovered/Resolved]
  - Oedema peripheral [Recovering/Resolving]
  - Drug reaction with eosinophilia and systemic symptoms [Recovered/Resolved]
  - Pyrexia [Recovering/Resolving]

NARRATIVE: CASE EVENT DATE: 201402
